FAERS Safety Report 25753852 (Version 1)
Quarter: 2025Q3

REPORT INFORMATION
  Report Type: Spontaneous
  Country: MA (occurrence: MA)
  Receive Date: 20250903
  Receipt Date: 20250903
  Transmission Date: 20251021
  Serious: Yes (Other)
  Sender: VIIV
  Company Number: MA-GSK-MA2025GSK110722

PATIENT
  Age: 23 Year
  Sex: Male

DRUGS (3)
  1. LAMIVUDINE [Suspect]
     Active Substance: LAMIVUDINE
     Indication: HIV infection
  2. TENOFOVIR DISOPROXIL FUMARATE [Suspect]
     Active Substance: TENOFOVIR DISOPROXIL FUMARATE
     Indication: HIV infection
  3. DOLUTEGRAVIR [Suspect]
     Active Substance: DOLUTEGRAVIR
     Indication: HIV infection

REACTIONS (2)
  - Cutaneous leishmaniasis [Not Recovered/Not Resolved]
  - Immune reconstitution inflammatory syndrome [Unknown]
